FAERS Safety Report 15181052 (Version 1)
Quarter: 2018Q3

REPORT INFORMATION
  Report Type: Spontaneous
  Country: US (occurrence: US)
  Receive Date: 20180723
  Receipt Date: 20180723
  Transmission Date: 20181010
  Serious: Yes (Other)
  Sender: FDA-Public Use
  Company Number: US-RECKITT BENCKISER HEALTHCARE INT LIMITED-RB-88809-2018

PATIENT
  Sex: Male

DRUGS (1)
  1. DEXTROMETHORPHAN [Suspect]
     Active Substance: DEXTROMETHORPHAN
     Indication: POST-TRAUMATIC STRESS DISORDER
     Dosage: UP TO 2400 MG PER DAY (CHRONIC 10?YEAR ABUSE OF DEXTROMETHORPHAN UNKNOWN)
     Route: 065

REACTIONS (3)
  - Dissociative disorder [Unknown]
  - Euphoric mood [Unknown]
  - Drug abuse [Unknown]
